FAERS Safety Report 5530827-4 (Version None)
Quarter: 2007Q4

REPORT INFORMATION
  Report Type: 
  Country: None (occurrence: None)
  Receive Date: 20071130
  Receipt Date: 20071121
  Transmission Date: 20080405
  Serious: Yes (Hospitalization, Other)
  Sender: FDA-Public Use
  Company Number: GB-AMGEN-US248023

PATIENT
  Sex: Female

DRUGS (3)
  1. ENBREL [Suspect]
     Indication: RHEUMATOID ARTHRITIS
     Route: 058
     Dates: start: 20070101
  2. METHOTREXATE [Concomitant]
     Dosage: UNKNOWN
  3. ETORICOXIB [Concomitant]
     Dosage: UNKNOWN
     Route: 048

REACTIONS (2)
  - ANEURYSM [None]
  - SUBARACHNOID HAEMORRHAGE [None]
